FAERS Safety Report 20389935 (Version 1)
Quarter: 2022Q1

REPORT INFORMATION
  Report Type: Spontaneous
  Country: US (occurrence: US)
  Receive Date: 20220128
  Receipt Date: 20220128
  Transmission Date: 20220424
  Serious: No
  Sender: FDA-Public Use
  Company Number: US-ELI_LILLY_AND_COMPANY-US202201010953

PATIENT
  Age: 46 Year

DRUGS (1)
  1. LYUMJEV [Suspect]
     Active Substance: INSULIN LISPRO-AABC
     Indication: Type 1 diabetes mellitus
     Dosage: 30 U, UNKNOWN
     Route: 058
     Dates: start: 202112

REACTIONS (2)
  - Infusion site pain [Unknown]
  - Infusion site bruising [Unknown]
